FAERS Safety Report 8198628-9 (Version None)
Quarter: 2012Q1

REPORT INFORMATION
  Report Type: 
  Country: None (occurrence: None)
  Receive Date: 20120309
  Receipt Date: 20120106
  Transmission Date: 20120608
  Serious: No
  Sender: FDA-Public Use
  Company Number: US-AMGEN-USASP2011068663

PATIENT
  Age: 80 Year
  Sex: Female
  Weight: 67 kg

DRUGS (15)
  1. ASPIRIN [Concomitant]
     Dosage: 81 MG, UNK
  2. FISH OIL [Concomitant]
     Dosage: 1200 MG, QD
  3. ECHINACEA [Concomitant]
     Dosage: 400 MG, QD
  4. OMEPRAZOLE [Concomitant]
     Dosage: 20 MG, QD
  5. VITAMIN C + E [Concomitant]
     Dosage: UNK
  6. LORATADINE [Concomitant]
     Dosage: 10 MG, QD
  7. BENAZEPRIL HYDROCHLORIDE [Concomitant]
     Dosage: 40 MG, Q12H
  8. CALCIUM VIT D [Concomitant]
     Dosage: UNK UNK, Q12H
  9. LUTEIN [Concomitant]
     Dosage: 20 MG, QD
  10. MULTI-VITAMIN [Concomitant]
  11. AMLODIPINE [Concomitant]
     Dosage: 10 MG, QD
  12. FUROSEMIDE [Concomitant]
     Dosage: 20 MG, QD
  13. PROLIA [Suspect]
     Indication: OSTEOPOROSIS POSTMENOPAUSAL
     Dosage: 60 MG, Q6MO
     Route: 058
     Dates: start: 20101203
  14. METOPROLOL SUCCINATE [Concomitant]
     Dosage: 50 MG, Q12H
  15. SIMVASTATIN [Concomitant]
     Dosage: 80 MG, QD

REACTIONS (2)
  - HYPERSENSITIVITY [None]
  - PRURITUS [None]
